FAERS Safety Report 9509019 (Version 1)
Quarter: 2013Q3

REPORT INFORMATION
  Report Type: Spontaneous
  Country: US (occurrence: US)
  Receive Date: 20130909
  Receipt Date: 20130909
  Transmission Date: 20140515
  Serious: No
  Sender: FDA-Public Use
  Company Number: US-BRISTOL-MYERS SQUIBB COMPANY-17380676

PATIENT
  Age: 4 Decade
  Sex: Female

DRUGS (2)
  1. ABILIFY TABS 5 MG [Suspect]
     Indication: MAJOR DEPRESSION
     Dosage: ABILIFY 2.5MG (HALF OF A 5MG TABLET) ?DOSE WAS INCREASED TO 5MG (AND POSSIBLY 10MG).
  2. CLONIDINE [Concomitant]

REACTIONS (2)
  - Weight increased [Unknown]
  - Akathisia [Unknown]
